FAERS Safety Report 24354755 (Version 2)
Quarter: 2024Q3

REPORT INFORMATION
  Report Type: Spontaneous
  Country: CN (occurrence: CN)
  Receive Date: 20240923
  Receipt Date: 20240926
  Transmission Date: 20241016
  Serious: Yes (Other)
  Sender: Unknown Manufacturer
  Company Number: CN-BLUEPRINT MEDICINES CORPORATION-2024BUS004517

PATIENT

DRUGS (7)
  1. GAVRETO [Suspect]
     Active Substance: PRALSETINIB
     Indication: Non-small cell lung cancer
     Dosage: 400 MILLIGRAM, QD
     Route: 065
     Dates: start: 20210218, end: 20210223
  2. GAVRETO [Suspect]
     Active Substance: PRALSETINIB
     Dosage: 400 MILLIGRAM, QD
     Route: 065
     Dates: start: 20210304, end: 20210309
  3. GAVRETO [Suspect]
     Active Substance: PRALSETINIB
     Dosage: 400 MILLIGRAM, QD
     Route: 065
     Dates: start: 20210403
  4. ALECTINIB [Suspect]
     Active Substance: ALECTINIB
     Indication: Non-small cell lung cancer
     Dosage: UNK
     Route: 065
     Dates: start: 20201029, end: 20210120
  5. BEVACIZUMAB [Suspect]
     Active Substance: BEVACIZUMAB
     Indication: Non-small cell lung cancer
     Dosage: SIX CYCLES
     Route: 065
     Dates: start: 20191030, end: 20200324
  6. BEVACIZUMAB [Suspect]
     Active Substance: BEVACIZUMAB
     Dosage: FOUR CYCLES AS MAINTENANCE THERAPY
     Route: 065
     Dates: start: 20200424, end: 20200817
  7. PEMETREXED [Suspect]
     Active Substance: PEMETREXED
     Indication: Non-small cell lung cancer
     Dosage: FOUR CYCLES AS MAINTENANCE THERAPY
     Route: 065
     Dates: start: 20200424, end: 20200817

REACTIONS (5)
  - Disease progression [Recovered/Resolved]
  - Erythropenia [Unknown]
  - Drug ineffective [Unknown]
  - Leukopenia [Unknown]
  - Neutropenia [Unknown]
